FAERS Safety Report 21181965 (Version 1)
Quarter: 2022Q3

REPORT INFORMATION
  Report Type: Spontaneous
  Country: CN (occurrence: None)
  Receive Date: 20220807
  Receipt Date: 20220807
  Transmission Date: 20221026
  Serious: Yes (Other)
  Sender: FDA-Public Use
  Company Number: CN-ROCHE-3151497

PATIENT
  Age: 71 Year
  Sex: Male

DRUGS (10)
  1. ALECENSA [Suspect]
     Active Substance: ALECTINIB HYDROCHLORIDE
     Indication: Metastases to central nervous system
     Route: 065
     Dates: start: 201902
  2. ALECENSA [Suspect]
     Active Substance: ALECTINIB HYDROCHLORIDE
     Indication: Lung adenocarcinoma
  3. CRIZOTINIB [Concomitant]
     Active Substance: CRIZOTINIB
     Indication: Metastases to central nervous system
     Dates: start: 201607
  4. CRIZOTINIB [Concomitant]
     Active Substance: CRIZOTINIB
     Indication: Lung adenocarcinoma
  5. CISPLATIN [Concomitant]
     Active Substance: CISPLATIN
     Indication: Metastases to central nervous system
     Dates: start: 20150626, end: 20150903
  6. CISPLATIN [Concomitant]
     Active Substance: CISPLATIN
     Indication: Lung adenocarcinoma
  7. DOCETAXEL [Concomitant]
     Active Substance: DOCETAXEL
     Indication: Metastases to central nervous system
     Dates: start: 20150626, end: 20150903
  8. DOCETAXEL [Concomitant]
     Active Substance: DOCETAXEL
     Indication: Lung adenocarcinoma
  9. ENSARTINIB [Concomitant]
     Active Substance: ENSARTINIB
     Indication: Metastases to central nervous system
     Dates: start: 201801
  10. ENSARTINIB [Concomitant]
     Active Substance: ENSARTINIB
     Indication: Lung adenocarcinoma
     Dates: start: 20210827

REACTIONS (1)
  - Intracranial pressure increased [Recovering/Resolving]

NARRATIVE: CASE EVENT DATE: 20211001
